FAERS Safety Report 5197241-5 (Version None)
Quarter: 2006Q4

REPORT INFORMATION
  Report Type: 
  Country: None (occurrence: None)
  Receive Date: 20061228
  Receipt Date: 20061214
  Transmission Date: 20070319
  Serious: Yes (Hospitalization)
  Sender: FDA-Public Use
  Company Number: GXKR2006IN07852

PATIENT
  Age: 17 Year
  Sex: Female

DRUGS (1)
  1. CLOZAPINE [Suspect]
     Dosage: 3.9 G, ONCE, ORAL
     Route: 048

REACTIONS (14)
  - AREFLEXIA [None]
  - BLOOD CREATININE INCREASED [None]
  - DRUG TOXICITY [None]
  - FACIAL PALSY [None]
  - INTENTIONAL OVERDOSE [None]
  - LOSS OF CONSCIOUSNESS [None]
  - MIOSIS [None]
  - MYOSITIS [None]
  - PUPILLARY REFLEX IMPAIRED [None]
  - RALES [None]
  - RESPIRATORY RATE INCREASED [None]
  - SELF-MEDICATION [None]
  - SINUS TACHYCARDIA [None]
  - SUICIDE ATTEMPT [None]
